FAERS Safety Report 25204470 (Version 1)
Quarter: 2025Q2

REPORT INFORMATION
  Report Type: Report from Study
  Country: US (occurrence: US)
  Receive Date: 20250416
  Receipt Date: 20250416
  Transmission Date: 20250716
  Serious: Yes (Other)
  Sender: BAYER
  Company Number: US-BAYER-2025A036765

PATIENT
  Age: 72 Year
  Sex: Male

DRUGS (9)
  1. NUBEQA [Suspect]
     Active Substance: DAROLUTAMIDE
     Indication: Hormone-refractory prostate cancer
     Dosage: 600 MG, QD
     Route: 048
     Dates: start: 20250212
  2. BACLOFEN [Concomitant]
     Active Substance: BACLOFEN
  3. VITAMIN C [Concomitant]
     Active Substance: ASCORBIC ACID
  4. THIAMINE HYDROCHLORIDE [Concomitant]
     Active Substance: THIAMINE HYDROCHLORIDE
  5. ESCITALOPRAM OXALATE [Concomitant]
     Active Substance: ESCITALOPRAM OXALATE
  6. MAGNESIUM [Concomitant]
     Active Substance: MAGNESIUM
  7. VITAMIN D [Concomitant]
     Active Substance: VITAMIN D NOS
  8. VITAMIN D2 [Concomitant]
     Active Substance: ERGOCALCIFEROL
  9. VITAMIN B3 [Concomitant]
     Active Substance: NIACIN

REACTIONS (5)
  - Skull base tumour [None]
  - Loss of personal independence in daily activities [Not Recovered/Not Resolved]
  - Blood iron decreased [Not Recovered/Not Resolved]
  - Swelling face [Unknown]
  - Product use issue [None]

NARRATIVE: CASE EVENT DATE: 20250101
